FAERS Safety Report 7500895-9 (Version None)
Quarter: 2011Q2

REPORT INFORMATION
  Report Type: 
  Country: None (occurrence: None)
  Receive Date: 20110524
  Receipt Date: 20110517
  Transmission Date: 20111010
  Serious: Yes (Other)
  Sender: FDA-Public Use
  Company Number: B0720133A

PATIENT
  Age: 73 Year
  Sex: Male

DRUGS (6)
  1. SPIRIVA [Concomitant]
  2. VENTOLIN [Suspect]
     Route: 055
  3. OXEOL [Concomitant]
  4. BECLOMETHASONE [Concomitant]
  5. SINGULAIR [Concomitant]
  6. FORMOTEROL FUMARATE [Concomitant]

REACTIONS (1)
  - DRUG ABUSE [None]
